FAERS Safety Report 4565306-4 (Version None)
Quarter: 2005Q1

REPORT INFORMATION
  Report Type: 
  Country: None (occurrence: None)
  Receive Date: 20050131
  Receipt Date: 20020718
  Transmission Date: 20050727
  Serious: Yes (Hospitalization)
  Sender: FDA-Public Use
  Company Number: DE-MERCK-0207DEU00144

PATIENT
  Age: 7 Year
  Sex: Male
  Weight: 29 kg

DRUGS (5)
  1. VIOXX [Suspect]
     Indication: RENAL TUBULAR DISORDER
     Route: 048
     Dates: start: 20000101, end: 20020501
  2. VIOXX [Suspect]
     Route: 048
     Dates: start: 20020101
  3. POTASSIUM CHLORIDE [Concomitant]
     Indication: RENAL TUBULAR DISORDER
     Route: 065
  4. SULFASALAZINE [Concomitant]
     Indication: COLITIS
     Route: 065
  5. AMLODIPINE BESYLATE [Concomitant]
     Indication: HYPERTENSION
     Route: 048

REACTIONS (3)
  - BLOOD PRESSURE INCREASED [None]
  - COLITIS [None]
  - OFF LABEL USE [None]
